FAERS Safety Report 21280335 (Version 4)
Quarter: 2023Q2

REPORT INFORMATION
  Report Type: Spontaneous
  Country: US (occurrence: US)
  Receive Date: 20220901
  Receipt Date: 20230620
  Transmission Date: 20230721
  Serious: No
  Sender: FDA-Public Use
  Company Number: US-PFIZER INC-PV202200054959

PATIENT
  Age: 46 Year
  Sex: Female

DRUGS (1)
  1. XELJANZ XR [Suspect]
     Active Substance: TOFACITINIB CITRATE
     Dosage: 11 MG
     Dates: start: 202207

REACTIONS (8)
  - Headache [Recovering/Resolving]
  - Nausea [Recovering/Resolving]
  - Abdominal discomfort [Unknown]
  - Cheilitis [Unknown]
  - Influenza [Unknown]
  - Malaise [Unknown]
  - Product dose omission in error [Unknown]
  - Memory impairment [Unknown]

NARRATIVE: CASE EVENT DATE: 20220701
